FAERS Safety Report 22018956 (Version 2)
Quarter: 2024Q2

REPORT INFORMATION
  Report Type: Report from Study
  Country: DE (occurrence: DE)
  Receive Date: 20230222
  Receipt Date: 20240622
  Transmission Date: 20240716
  Serious: Yes (Hospitalization)
  Sender: FDA-Public Use
  Company Number: DE-ABBVIE-4314813

PATIENT
  Age: 72 Year
  Sex: Female

DRUGS (1)
  1. SKYRIZI [Suspect]
     Active Substance: RISANKIZUMAB-RZAA
     Indication: Psoriasis
     Route: 058
     Dates: start: 20191106

REACTIONS (1)
  - COVID-19 [Recovered/Resolved]

NARRATIVE: CASE EVENT DATE: 20221020
